FAERS Safety Report 4911046-9 (Version None)
Quarter: 2006Q1

REPORT INFORMATION
  Report Type: 
  Country: None (occurrence: None)
  Receive Date: 20060209
  Receipt Date: 20060127
  Transmission Date: 20060701
  Serious: Yes (Hospitalization, Other)
  Sender: FDA-Public Use
  Company Number: 2005142536

PATIENT
  Sex: Male

DRUGS (7)
  1. ALPRAZOLAM [Suspect]
     Indication: ILL-DEFINED DISORDER
     Dates: end: 20050101
  2. THIOPENTAL SODIUM [Suspect]
     Indication: ILL-DEFINED DISORDER
     Dates: start: 20051001, end: 20051001
  3. MIDAZOLAM HCL [Suspect]
     Indication: ILL-DEFINED DISORDER
     Dates: start: 20051001, end: 20051001
  4. DEPAS (ETIZOLAM) [Suspect]
     Indication: ILL-DEFINED DISORDER
  5. PAXIL [Suspect]
     Indication: ILL-DEFINED DISORDER
  6. NITRAZEPAM [Suspect]
     Indication: ILL-DEFINED DISORDER
  7. BROMAZEPAM [Concomitant]

REACTIONS (5)
  - APGAR SCORE LOW [None]
  - CAESAREAN SECTION [None]
  - DRUG EXPOSURE DURING PREGNANCY [None]
  - NEONATAL ASPHYXIA [None]
  - NEONATAL RESPIRATORY DEPRESSION [None]
